FAERS Safety Report 6015441-9 (Version None)
Quarter: 2008Q4

REPORT INFORMATION
  Report Type: 
  Country: None (occurrence: None)
  Receive Date: 20081222
  Receipt Date: 20081211
  Transmission Date: 20090506
  Serious: Yes (Other)
  Sender: FDA-Public Use
  Company Number: PHEH2008US11030

PATIENT
  Sex: Female

DRUGS (12)
  1. VIVELLE-DOT [Suspect]
     Indication: HORMONE REPLACEMENT THERAPY
     Dosage: ONE PATCH TWICE WEEKLY
  2. ZOCOR [Suspect]
     Indication: BLOOD CHOLESTEROL
     Dosage: 10 MG, QD
  3. PROGESTERONE [Suspect]
     Indication: HORMONE REPLACEMENT THERAPY
     Dosage: UNK
  4. FLAXSEED OIL [Concomitant]
  5. LUTEIN [Concomitant]
  6. VITAMIN A [Concomitant]
     Dosage: 10000 U, UNK
  7. SYNTHROID [Concomitant]
     Indication: AUTOIMMUNE THYROIDITIS
     Dosage: 0.1 MG, QD
  8. ASPIRIN [Concomitant]
  9. LOVAZA [Concomitant]
  10. CALCIUM [Concomitant]
  11. VITAMIN D3 [Concomitant]
  12. VICODIN [Concomitant]
     Indication: PAIN
     Dosage: 5/500 MG 1/2 TAB BID

REACTIONS (10)
  - ALOPECIA [None]
  - DIZZINESS [None]
  - DRY EYE [None]
  - DYSPNOEA [None]
  - ENDOMETRIAL HYPERPLASIA [None]
  - FIBROMYALGIA [None]
  - HEADACHE [None]
  - HYSTERECTOMY [None]
  - NAUSEA [None]
  - SENSATION OF HEAVINESS [None]
